FAERS Safety Report 5162024-9 (Version None)
Quarter: 2006Q4

REPORT INFORMATION
  Report Type: 
  Country: None (occurrence: None)
  Receive Date: 20061121
  Receipt Date: 20061107
  Transmission Date: 20070319
  Serious: Yes (Death)
  Sender: FDA-Public Use
  Company Number: 2006-286

PATIENT
  Age: 56 Year
  Sex: Male

DRUGS (1)
  1. CITALOPRAM HYDROBROMIDE [Suspect]

REACTIONS (3)
  - BLOOD ALCOHOL INCREASED [None]
  - DRUG LEVEL ABOVE THERAPEUTIC [None]
  - FOREIGN BODY TRAUMA [None]
